FAERS Safety Report 16586442 (Version 1)
Quarter: 2019Q3

REPORT INFORMATION
  Report Type: Spontaneous
  Country: DE (occurrence: DE)
  Receive Date: 20190717
  Receipt Date: 20190717
  Transmission Date: 20191004
  Serious: Yes (Hospitalization, Other)
  Sender: FDA-Public Use
  Company Number: DE-NOVOPROD-672151

PATIENT
  Age: 73 Year
  Sex: Male
  Weight: 100 kg

DRUGS (10)
  1. KALIUMCITRAT [Concomitant]
     Dosage: 1-0-0, GRANULAT
     Route: 048
  2. INSULIN GLARGINE [Suspect]
     Active Substance: INSULIN GLARGINE
     Indication: PRODUCT USED FOR UNKNOWN INDICATION
     Dosage: UNK
     Route: 058
  3. METFORMIN [Concomitant]
     Active Substance: METFORMIN HYDROCHLORIDE
     Dosage: 500 MG, BID(1-0-1, TABLETS)
     Route: 048
  4. HUMAN INSULIN [Suspect]
     Active Substance: INSULIN HUMAN
     Indication: PRODUCT USED FOR UNKNOWN INDICATION
     Dosage: 100 IE/ML, UNTIL 20.03.2018, INJECTION-/INFUSION SOLUTION
     Route: 058
  5. TORASEMID [Concomitant]
     Active Substance: TORSEMIDE
     Dosage: 2.5 MG, QD(2-0-0, TABLETS)
     Route: 048
  6. PANTOPRAZOL [Concomitant]
     Active Substance: PANTOPRAZOLE SODIUM
     Dosage: 20 MG, QD(1-0-0, TABLETS)
     Route: 048
  7. BISOPROLOL [Concomitant]
     Active Substance: BISOPROLOL
     Dosage: 2.5 MG, 2-0-1, TABLETS
     Route: 048
  8. RIVAROXABAN [Concomitant]
     Active Substance: RIVAROXABAN
     Dosage: 15 MG, QD(1-0-0, TABLETS)
     Route: 048
  9. CINNARIZIN/DIMENHYDRINAT [Concomitant]
     Dosage: 20|40 MG, 1-1-1, TABLETS
     Route: 048
  10. ATORVASTATIN [Concomitant]
     Active Substance: ATORVASTATIN
     Dosage: 20 MG, QD(0-0-1, TABLETS)
     Route: 048

REACTIONS (2)
  - Accidental overdose [Unknown]
  - Seizure [Unknown]

NARRATIVE: CASE EVENT DATE: 20180318
